FAERS Safety Report 7818965-4 (Version None)
Quarter: 2011Q4

REPORT INFORMATION
  Report Type: 
  Country: None (occurrence: None)
  Receive Date: 20111018
  Receipt Date: 20111010
  Transmission Date: 20120403
  Serious: Yes (Death, Life-Threatening, Other)
  Sender: FDA-Public Use
  Company Number: FR-JNJFOC-20110710331

PATIENT
  Sex: Female

DRUGS (6)
  1. HALDOL [Suspect]
     Indication: PALLIATIVE CARE
     Route: 065
  2. HALDOL [Suspect]
     Indication: VOMITING
     Route: 065
  3. HALDOL [Suspect]
     Indication: PAIN
     Route: 042
     Dates: start: 20110718, end: 20110720
  4. HALDOL [Suspect]
     Indication: PALLIATIVE CARE
     Route: 042
     Dates: start: 20110718, end: 20110720
  5. HALDOL [Suspect]
     Indication: VOMITING
     Route: 042
     Dates: start: 20110718, end: 20110720
  6. MORPHINE [Concomitant]
     Indication: PAIN
     Route: 065

REACTIONS (6)
  - LUNG NEOPLASM MALIGNANT [None]
  - INCORRECT ROUTE OF DRUG ADMINISTRATION [None]
  - OFF LABEL USE [None]
  - HEPATIC NEOPLASM MALIGNANT [None]
  - RESPIRATORY DISORDER [None]
  - DRUG ADMINISTRATION ERROR [None]
